FAERS Safety Report 5979830-0 (Version None)
Quarter: 2008Q4

REPORT INFORMATION
  Report Type: 
  Country: None (occurrence: None)
  Receive Date: 20081205
  Receipt Date: 20081127
  Transmission Date: 20090506
  Serious: Yes (Hospitalization, Other)
  Sender: FDA-Public Use
  Company Number: US-RANBAXY-2008US-19603

PATIENT

DRUGS (1)
  1. VALACYCLOVIR HYDROCHLORIDE [Suspect]
     Indication: HERPES ZOSTER DISSEMINATED
     Dosage: 1 G, TID
     Route: 048

REACTIONS (2)
  - HERPES ZOSTER DISSEMINATED [None]
  - PYREXIA [None]
